FAERS Safety Report 9606722 (Version 2)
Quarter: 2013Q4

REPORT INFORMATION
  Report Type: Spontaneous
  Country: US (occurrence: US)
  Receive Date: 20131008
  Receipt Date: 20131008
  Transmission Date: 20140711
  Serious: No
  Sender: FDA-Public Use
  Company Number: US-AMGEN-USASP2013061027

PATIENT
  Age: 61 Year
  Sex: Female
  Weight: 48.07 kg

DRUGS (3)
  1. PROLIA [Suspect]
     Indication: OSTEOPOROSIS POSTMENOPAUSAL
     Dosage: 60 MG, UNK
     Route: 058
     Dates: start: 20130729
  2. VITAMIN D3 [Concomitant]
     Dosage: 2000 IU, QD
     Route: 048
  3. ZOLPIDEM [Concomitant]
     Dosage: 10 MG, AS NECESSARY
     Route: 048

REACTIONS (9)
  - Arthralgia [Recovering/Resolving]
  - Dry throat [Recovering/Resolving]
  - Muscle spasms [Recovering/Resolving]
  - Musculoskeletal discomfort [Recovering/Resolving]
  - Vertigo [Recovering/Resolving]
  - Insomnia [Unknown]
  - Dysphonia [Unknown]
  - Headache [Recovered/Resolved]
  - Intraocular pressure increased [Unknown]
